FAERS Safety Report 4697601-2 (Version None)
Quarter: 2005Q2

REPORT INFORMATION
  Report Type: 
  Country: None (occurrence: None)
  Receive Date: 20050621
  Receipt Date: 20050511
  Transmission Date: 20051028
  Serious: Yes (Hospitalization, Other)
  Sender: FDA-Public Use
  Company Number: US_0412108862

PATIENT
  Age: 78 Year
  Sex: Female

DRUGS (9)
  1. PERMAX [Suspect]
     Indication: PARKINSON'S DISEASE
     Dosage: 7.5 MG DAY
     Dates: start: 19940101, end: 19980401
  2. SINEMET [Concomitant]
  3. XANAX [Concomitant]
  4. COGENTIN [Concomitant]
  5. MYSOLINE [Concomitant]
  6. ZESTRIL [Concomitant]
  7. NITROGLYCERIN [Concomitant]
  8. CARDIZEM [Concomitant]
  9. ARTANE [Concomitant]

REACTIONS (22)
  - ALOPECIA [None]
  - ANAEMIA [None]
  - ANGINA PECTORIS [None]
  - AORTIC VALVE INCOMPETENCE [None]
  - CARDIAC FAILURE CONGESTIVE [None]
  - CARDIOMYOPATHY [None]
  - CARDIOVASCULAR DISORDER [None]
  - CHOLECYSTECTOMY [None]
  - CORONARY ARTERY DISEASE [None]
  - DRUG INEFFECTIVE [None]
  - HYPERLIPIDAEMIA [None]
  - HYPERTENSION [None]
  - MITRAL VALVE INCOMPETENCE [None]
  - NEUROMA [None]
  - OESOPHAGEAL ULCER [None]
  - PAIN IN EXTREMITY [None]
  - PLEURAL EFFUSION [None]
  - PULMONARY HYPERTENSION [None]
  - PULMONARY OEDEMA [None]
  - SPINAL OSTEOARTHRITIS [None]
  - THROMBOCYTOPENIA [None]
  - TRICUSPID VALVE INCOMPETENCE [None]
